FAERS Safety Report 8256482-0 (Version None)
Quarter: 2012Q2

REPORT INFORMATION
  Report Type: 
  Country: None (occurrence: None)
  Receive Date: 20120403
  Receipt Date: 20120320
  Transmission Date: 20120825
  Serious: Yes (Other)
  Sender: FDA-Public Use
  Company Number: CHPA2012US005391

PATIENT
  Age: 63 Year
  Sex: Female

DRUGS (5)
  1. EXCEDRIN (MIGRAINE) [Suspect]
     Indication: MIGRAINE
     Dosage: UNK DF, UNK
     Route: 048
  2. HORMONES [Concomitant]
     Dosage: UNK
  3. DRUG USED IN DIABETES [Suspect]
     Dosage: MORE THAN ONCE, QD
     Route: 048
     Dates: start: 20110101, end: 20110101
  4. DRUG THERAPY NOS [Concomitant]
     Indication: MUSCLE SPASMS
     Dosage: UNK
  5. DRUG THERAPY NOS [Concomitant]
     Indication: VARICOSE VEIN RUPTURED
     Dosage: UNK

REACTIONS (7)
  - ABASIA [None]
  - MUSCULAR WEAKNESS [None]
  - FALL [None]
  - PAIN [None]
  - PARALYSIS [None]
  - SLEEP APNOEA SYNDROME [None]
  - ARTHRALGIA [None]
